FAERS Safety Report 12950655 (Version 1)
Quarter: 2016Q4

REPORT INFORMATION
  Report Type: Spontaneous
  Country: US (occurrence: US)
  Receive Date: 20161117
  Receipt Date: 20161117
  Transmission Date: 20170207
  Serious: Yes (Other)
  Sender: FDA-Public Use
  Company Number: None

PATIENT
  Age: 37 Year
  Sex: Female
  Weight: 107.05 kg

DRUGS (9)
  1. NEURONTIN [Concomitant]
     Active Substance: GABAPENTIN
  2. ABILIFY [Concomitant]
     Active Substance: ARIPIPRAZOLE
  3. DELESTROGEN [Concomitant]
     Active Substance: ESTRADIOL VALERATE
  4. COPAXONE [Suspect]
     Active Substance: GLATIRAMER ACETATE
     Indication: MULTIPLE SCLEROSIS
     Dosage: GLATIRAMER (COPAXONE) 20MG SUBCUTANEOUS, QD, 30 SYRINGES= 1 BOX
     Route: 058
     Dates: start: 20150401, end: 20151201
  5. SYMMETREL [Concomitant]
     Active Substance: AMANTADINE HYDROCHLORIDE
  6. TOPROL XL [Concomitant]
     Active Substance: METOPROLOL SUCCINATE
  7. RESTORIL [Concomitant]
     Active Substance: TEMAZEPAM
  8. VITAMINS [Concomitant]
     Active Substance: VITAMINS
  9. ZOLOFT [Concomitant]
     Active Substance: SERTRALINE HYDROCHLORIDE

REACTIONS (8)
  - Drug ineffective [None]
  - Multiple sclerosis [None]
  - Coordination abnormal [None]
  - Asthenia [None]
  - Visual field defect [None]
  - Product substitution issue [None]
  - Muscle spasms [None]
  - Grip strength decreased [None]

NARRATIVE: CASE EVENT DATE: 20150401
